FAERS Safety Report 17770070 (Version 1)
Quarter: 2020Q2

REPORT INFORMATION
  Report Type: Spontaneous
  Country: US (occurrence: US)
  Receive Date: 20200512
  Receipt Date: 20200512
  Transmission Date: 20200714
  Serious: No
  Sender: FDA-Public Use
  Company Number: US-MYLANLABS-2020M1046205

PATIENT
  Age: 57 Year
  Sex: Male
  Weight: 77 kg

DRUGS (1)
  1. ESOMEPRAZOLE MAGNESIUM D/R [Suspect]
     Active Substance: ESOMEPRAZOLE MAGNESIUM
     Indication: DYSPEPSIA
     Dosage: 40 MILLIGRAM

REACTIONS (1)
  - Drug ineffective [Unknown]
